FAERS Safety Report 12729923 (Version 3)
Quarter: 2016Q4

REPORT INFORMATION
  Report Type: Spontaneous
  Country: US (occurrence: US)
  Receive Date: 20160909
  Receipt Date: 20161111
  Transmission Date: 20170207
  Serious: Yes (Disabling)
  Sender: FDA-Public Use
  Company Number: US-SAOL THERAPEUTICS-2016SAO00430

PATIENT
  Age: 56 Year
  Sex: Female

DRUGS (6)
  1. BACLOFEN. [Suspect]
     Active Substance: BACLOFEN
     Indication: POST LAMINECTOMY SYNDROME
  2. BACLOFEN. [Suspect]
     Active Substance: BACLOFEN
     Indication: PAIN
     Dosage: 63.67 ?G, \DAY
     Route: 037
  3. DILAUDID [Suspect]
     Active Substance: HYDROMORPHONE HYDROCHLORIDE
     Dosage: 2.0459 MG, \DAY
     Route: 037
  4. LORTAB [Concomitant]
     Active Substance: ACETAMINOPHEN\HYDROCODONE BITARTRATE
  5. FENTANYL. [Suspect]
     Active Substance: FENTANYL
     Dosage: 1022.9 ?G, \DAY
     Route: 037
  6. OXYCODONE [Concomitant]
     Active Substance: OXYCODONE

REACTIONS (6)
  - Pain [Unknown]
  - Back disorder [Unknown]
  - Drug ineffective for unapproved indication [Unknown]
  - Mobility decreased [Unknown]
  - Device alarm issue [Unknown]
  - Back pain [Unknown]

NARRATIVE: CASE EVENT DATE: 2015
